FAERS Safety Report 9354453 (Version 1)
Quarter: 2013Q2

REPORT INFORMATION
  Report Type: Report from Study
  Country: NL (occurrence: NL)
  Receive Date: 20130618
  Receipt Date: 20130618
  Transmission Date: 20140414
  Serious: Yes (Other)
  Sender: FDA-Public Use
  Company Number: NL-BAXTER-2013BAX022180

PATIENT
  Age: 54 Year
  Sex: Female

DRUGS (5)
  1. KIOVIG 100 MG/ML SOLUTION POUR PERFUSION (20 G/200 ML) [Suspect]
     Indication: SELECTIVE IGG SUBCLASS DEFICIENCY
     Route: 042
     Dates: start: 20130611
  2. KIOVIG 100 MG/ML SOLUTION POUR PERFUSION (20 G/200 ML) [Suspect]
     Route: 042
     Dates: start: 20100512
  3. SIMVASTATINE [Concomitant]
     Indication: PRODUCT USED FOR UNKNOWN INDICATION
     Route: 065
  4. CITALOPRAM [Concomitant]
     Indication: PRODUCT USED FOR UNKNOWN INDICATION
     Route: 065
  5. TRAMADOL [Concomitant]
     Indication: PRODUCT USED FOR UNKNOWN INDICATION
     Route: 065

REACTIONS (1)
  - Upper respiratory tract infection [Recovered/Resolved]
